FAERS Safety Report 9964346 (Version 1)
Quarter: 2014Q1

REPORT INFORMATION
  Report Type: Spontaneous
  Country: JP (occurrence: JP)
  Receive Date: 20140305
  Receipt Date: 20140305
  Transmission Date: 20141002
  Serious: Yes (Other)
  Sender: FDA-Public Use
  Company Number: JP-GLAXOSMITHKLINE-B0908348A

PATIENT
  Sex: Male

DRUGS (1)
  1. VOTRIENT 200MG [Suspect]
     Indication: SOFT TISSUE CANCER
     Route: 048
     Dates: start: 20130508

REACTIONS (1)
  - Hepatic function abnormal [Recovered/Resolved]
